FAERS Safety Report 14388476 (Version 1)
Quarter: 2018Q1

REPORT INFORMATION
  Report Type: Spontaneous
  Country: US (occurrence: US)
  Receive Date: 20180115
  Receipt Date: 20180115
  Transmission Date: 20180509
  Serious: Yes (Other)
  Sender: FDA-Public Use
  Company Number: US-TARO-2018TAR00009

PATIENT
  Sex: Male
  Weight: 102.4 kg

DRUGS (1)
  1. MUPIROCIN OINTMENT USP 2% [Suspect]
     Active Substance: MUPIROCIN
     Indication: POST PROCEDURAL INFECTION
     Dosage: ^QUITE A BIT,^ UP TO 2X/DAY
     Route: 045
     Dates: start: 201706, end: 201711

REACTIONS (7)
  - Inappropriate schedule of drug administration [Recovered/Resolved]
  - Staphylococcal infection [Recovered/Resolved]
  - Mucosal inflammation [Not Recovered/Not Resolved]
  - Off label use [Recovered/Resolved]
  - Application site dryness [Not Recovered/Not Resolved]
  - Product administered at inappropriate site [Recovered/Resolved]
  - Application site scab [Not Recovered/Not Resolved]

NARRATIVE: CASE EVENT DATE: 2017
